FAERS Safety Report 13053932 (Version 10)
Quarter: 2018Q4

REPORT INFORMATION
  Report Type: Spontaneous
  Country: US (occurrence: US)
  Receive Date: 20161222
  Receipt Date: 20181207
  Transmission Date: 20190204
  Serious: Yes (Congenital Anomaly, Other)
  Sender: FDA-Public Use
  Company Number: PHHY2015US129333

PATIENT
  Sex: Female

DRUGS (1)
  1. ZOFRAN ODT [Suspect]
     Active Substance: ONDANSETRON HYDROCHLORIDE
     Indication: FOETAL EXPOSURE DURING PREGNANCY
     Dosage: MOTHER DOSE: 8 MG, UNK
     Route: 064

REACTIONS (72)
  - Mastitis [Unknown]
  - Deafness bilateral [Unknown]
  - Wheezing [Unknown]
  - Cyclic vomiting syndrome [Unknown]
  - Sleep disorder [Unknown]
  - Acne [Unknown]
  - Tonsillar hypertrophy [Unknown]
  - Pyelonephritis [Unknown]
  - Pulmonary congestion [Unknown]
  - Rhinitis allergic [Unknown]
  - Hypernatraemia [Recovered/Resolved]
  - Decreased appetite [Unknown]
  - Myopia [Unknown]
  - Melanocytic naevus [Unknown]
  - Rhinorrhoea [Unknown]
  - Developmental delay [Unknown]
  - Bronchial wall thickening [Unknown]
  - Urinary tract infection [Unknown]
  - Pharyngitis streptococcal [Unknown]
  - Dehydration [Unknown]
  - Impetigo [Unknown]
  - Right ventricle outflow tract obstruction [Unknown]
  - Pulmonary hypertension [Unknown]
  - Pyrexia [Unknown]
  - Tachypnoea [Unknown]
  - Erythema [Unknown]
  - Cardiomegaly [Unknown]
  - Dyspnoea [Unknown]
  - Adenoidal hypertrophy [Unknown]
  - Left-to-right cardiac shunt [Unknown]
  - Mitral valve incompetence [Unknown]
  - Bronchitis [Unknown]
  - Vesicoureteric reflux [Unknown]
  - Viral infection [Unknown]
  - Cough [Unknown]
  - Pharyngitis [Unknown]
  - Ventricular septal defect [Unknown]
  - Right ventricular false tendon [Unknown]
  - Patent ductus arteriosus [Unknown]
  - Nasal congestion [Unknown]
  - Oropharyngeal pain [Unknown]
  - Diarrhoea [Unknown]
  - Oedema [Unknown]
  - Fallot^s tetralogy [Unknown]
  - Double outlet right ventricle [Unknown]
  - Heart disease congenital [Unknown]
  - Interstitial lung disease [Unknown]
  - Hydronephrosis [Unknown]
  - Ventricular hypertrophy [Unknown]
  - Failure to thrive [Unknown]
  - Foetal exposure during pregnancy [Unknown]
  - Apraxia [Unknown]
  - Dysuria [Unknown]
  - Upper respiratory tract infection [Unknown]
  - Conjunctivitis [Unknown]
  - Nasal septum deviation [Unknown]
  - Atrial septal defect [Unknown]
  - Bundle branch block right [Unknown]
  - Tricuspid valve incompetence [Unknown]
  - Respiratory distress [Unknown]
  - Bronchiolitis [Unknown]
  - Pneumonia [Unknown]
  - Wound infection [Unknown]
  - Cardiac murmur [Unknown]
  - Speech disorder [Unknown]
  - Acute sinusitis [Unknown]
  - Otitis media [Unknown]
  - Headache [Unknown]
  - Bandaemia [Recovered/Resolved]
  - Abdominal pain upper [Unknown]
  - Vomiting [Unknown]
  - Atelectasis [Unknown]
